FAERS Safety Report 6024358-5 (Version None)
Quarter: 2008Q4

REPORT INFORMATION
  Report Type: 
  Country: None (occurrence: None)
  Receive Date: 20081222
  Receipt Date: 20081020
  Transmission Date: 20090506
  Serious: No
  Sender: FDA-Public Use
  Company Number: SPV1-2008-02257

PATIENT
  Age: 19 Year
  Sex: Male
  Weight: 65.8 kg

DRUGS (3)
  1. VYVANSE [Suspect]
     Indication: ATTENTION DEFICIT/HYPERACTIVITY DISORDER
     Dosage: 30 MG, 1X/DAY:QD, ORAL
     Route: 048
     Dates: start: 20080101
  2. ACCUTANE [Concomitant]
  3. XANAX [Concomitant]

REACTIONS (4)
  - MYALGIA [None]
  - SNEEZING [None]
  - STRESS [None]
  - WEIGHT DECREASED [None]
